FAERS Safety Report 7060865-4 (Version None)
Quarter: 2010Q4

REPORT INFORMATION
  Report Type: 
  Country: None (occurrence: None)
  Receive Date: 20101025
  Receipt Date: 20101013
  Transmission Date: 20110411
  Serious: Yes (Other)
  Sender: FDA-Public Use
  Company Number: US-GILEAD-2010-0032551

PATIENT
  Age: 48 Year
  Sex: Male

DRUGS (11)
  1. VIREAD [Suspect]
     Indication: HIV INFECTION
     Dates: start: 20040901, end: 20090428
  2. STAVUDINE [Concomitant]
     Indication: HIV INFECTION
     Dates: end: 20041021
  3. LAMIVUDINE [Concomitant]
     Indication: HIV INFECTION
  4. DIDANOSINE [Concomitant]
     Indication: HIV INFECTION
  5. RITONAVIR [Concomitant]
     Indication: HIV INFECTION
  6. LOPINAVIR [Concomitant]
     Indication: HIV INFECTION
     Dates: start: 20040901, end: 20041021
  7. EFAVIRENZ [Concomitant]
     Indication: HIV INFECTION
  8. TRUVADA [Concomitant]
     Indication: HIV INFECTION
     Dates: start: 20041021, end: 20090428
  9. EMTRICITABINE [Concomitant]
     Dates: start: 20040901, end: 20041021
  10. ATAZANAVIR [Concomitant]
     Indication: HIV INFECTION
     Dates: start: 20041021
  11. ABACAVIR [Concomitant]
     Indication: HIV INFECTION
     Dates: start: 20090428

REACTIONS (5)
  - BLOOD ALKALINE PHOSPHATASE INCREASED [None]
  - BONE PAIN [None]
  - FANCONI SYNDROME ACQUIRED [None]
  - GAIT DISTURBANCE [None]
  - OSTEOPOROSIS [None]
